FAERS Safety Report 17686276 (Version 1)
Quarter: 2020Q2

REPORT INFORMATION
  Report Type: Spontaneous
  Country: GB (occurrence: GB)
  Receive Date: 20200420
  Receipt Date: 20200420
  Transmission Date: 20200714
  Serious: Yes (Other)
  Sender: FDA-Public Use
  Company Number: GB-AMGEN-GBRSP2020061404

PATIENT
  Age: 68 Year
  Sex: Male

DRUGS (4)
  1. CARFILZOMIB [Suspect]
     Active Substance: CARFILZOMIB
     Indication: PLASMA CELL MYELOMA
     Dosage: UNK
     Route: 065
  2. DEXAMETHASONE. [Concomitant]
     Active Substance: DEXAMETHASONE
     Indication: PLASMA CELL MYELOMA
     Dosage: 40 MILLIGRAM, QWK
  3. VENETOCLAX. [Concomitant]
     Active Substance: VENETOCLAX
     Indication: PLASMA CELL MYELOMA
     Dosage: UNK, WEEKLY DOSE INCREASE FROM 400 TO 1200 MG DAILY
     Dates: start: 201807
  4. DARATUMUMAB [Concomitant]
     Active Substance: DARATUMUMAB
     Indication: PLASMA CELL MYELOMA
     Dosage: 16 MILLIGRAM/KILOGRAM, QMO
     Route: 042

REACTIONS (3)
  - Non-small cell lung cancer [Not Recovered/Not Resolved]
  - Therapy partial responder [Unknown]
  - Rash pruritic [Unknown]

NARRATIVE: CASE EVENT DATE: 2017
